FAERS Safety Report 4445805-6 (Version None)
Quarter: 2004Q3

REPORT INFORMATION
  Report Type: 
  Country: None (occurrence: None)
  Receive Date: 20040902
  Receipt Date: 20040824
  Transmission Date: 20050211
  Serious: Yes (Hospitalization)
  Sender: FDA-Public Use
  Company Number: 2004EU001024

PATIENT
  Age: 56 Year
  Sex: Male

DRUGS (3)
  1. FK506 (TACROLIMUS CAPSULES)FK506 (TACROLIMUS) CAPSULE [Suspect]
     Indication: LIVER TRANSPLANT
     Dosage: SEE IMAGE
     Route: 048
     Dates: start: 20040311, end: 20040312
  2. FK506 (TACROLIMUS CAPSULES)FK506 (TACROLIMUS) CAPSULE [Suspect]
     Indication: LIVER TRANSPLANT
     Dosage: SEE IMAGE
     Route: 048
     Dates: start: 20040313, end: 20040318
  3. FK506 (TACROLIMUS CAPSULES)FK506 (TACROLIMUS) CAPSULE [Suspect]
     Indication: LIVER TRANSPLANT
     Dosage: SEE IMAGE
     Route: 048
     Dates: start: 20040319

REACTIONS (1)
  - HEPATIC ENCEPHALOPATHY [None]
